FAERS Safety Report 8487378-7 (Version None)
Quarter: 2012Q3

REPORT INFORMATION
  Report Type: 
  Country: None (occurrence: None)
  Receive Date: 20120705
  Receipt Date: 20120622
  Transmission Date: 20120928
  Serious: Yes (Other)
  Sender: FDA-Public Use
  Company Number: JP-ELI_LILLY_AND_COMPANY-JP201206008529

PATIENT
  Age: 68 Year
  Sex: Female

DRUGS (3)
  1. CYMBALTA [Suspect]
     Indication: DEPRESSION
     Dosage: 20 MG, QD
     Route: 048
     Dates: start: 20120101
  2. REFLEX                             /01293201/ [Concomitant]
     Indication: DEPRESSION
     Dosage: UNK
     Route: 048
  3. CYMBALTA [Suspect]
     Dosage: 40 MG, QD
     Route: 048
     Dates: end: 20120101

REACTIONS (2)
  - ALTERED STATE OF CONSCIOUSNESS [None]
  - IRRITABILITY [None]
